FAERS Safety Report 5371672-2 (Version None)
Quarter: 2007Q2

REPORT INFORMATION
  Report Type: 
  Country: None (occurrence: None)
  Receive Date: 20070627
  Receipt Date: 20070622
  Transmission Date: 20071010
  Serious: Yes (Death)
  Sender: FDA-Public Use
  Company Number: HQWYE774525JUN07

PATIENT
  Sex: Female

DRUGS (1)
  1. PRIMATENE MIST [Suspect]
     Dosage: UNKNOWN

REACTIONS (1)
  - DEATH [None]
